FAERS Safety Report 4964279-X (Version None)
Quarter: 2006Q2

REPORT INFORMATION
  Report Type: 
  Country: None (occurrence: None)
  Receive Date: 20060406
  Receipt Date: 20060324
  Transmission Date: 20061013
  Serious: Yes (Other)
  Sender: FDA-Public Use
  Company Number: PHMT2006CA00969

PATIENT
  Age: 74 Year
  Sex: Female

DRUGS (14)
  1. FEMARA [Suspect]
     Indication: BREAST CANCER
     Dosage: 2.5 MG, QD
     Route: 048
     Dates: start: 20050101
  2. CARBOCAL D [Concomitant]
     Dosage: 500 MG/400 IU BID
  3. AVANDIA [Concomitant]
     Dosage: 4 MG, BID
  4. APO-FUROSEMIDE [Concomitant]
     Dosage: 40 MG, UNK
  5. ALLOPURINOL [Concomitant]
     Dosage: 200 MG, UNK
  6. AMLODIPINE BESYLATE [Concomitant]
     Dosage: 10 MG, UNK
  7. LIPITOR [Concomitant]
     Dosage: 10 MG, UNK
  8. APO-GLYBURIDE [Concomitant]
     Dosage: 2.5 MG, UNK
  9. APO-METFORMIN [Concomitant]
     Dosage: 500 MG, UNK
  10. MICARDIS HCT [Concomitant]
     Dosage: 80 MG/12.5 MG
  11. PARIET [Concomitant]
     Dosage: 10 MG, BID
  12. APO-SALVENT [Concomitant]
  13. FLOVENT [Concomitant]
  14. INUFER [Concomitant]
     Dosage: 50 MG/ML,  TWICE MONTHLY

REACTIONS (3)
  - DYSPHAGIA [None]
  - DYSPNOEA [None]
  - OESOPHAGEAL DISORDER [None]
